FAERS Safety Report 24038670 (Version 1)
Quarter: 2024Q3

REPORT INFORMATION
  Report Type: Spontaneous
  Country: ES (occurrence: None)
  Receive Date: 20240702
  Receipt Date: 20240702
  Transmission Date: 20241017
  Serious: Yes (Other)
  Sender: ASTRAZENECA
  Company Number: 2024A149191

PATIENT
  Sex: Female

DRUGS (2)
  1. TEZEPELUMAB [Suspect]
     Active Substance: TEZEPELUMAB
     Indication: Asthma
     Route: 058
  2. DUPILUMAB [Concomitant]
     Active Substance: DUPILUMAB

REACTIONS (1)
  - Breast cancer [Unknown]
